FAERS Safety Report 4686165-5 (Version None)
Quarter: 2005Q2

REPORT INFORMATION
  Report Type: 
  Country: None (occurrence: None)
  Receive Date: 20050606
  Receipt Date: 20050525
  Transmission Date: 20051028
  Serious: Yes (Other)
  Sender: FDA-Public Use
  Company Number: US_0505117999

PATIENT
  Age: 43 Year
  Sex: Female

DRUGS (1)
  1. RALOXIFENE HYDROCHLORIDE [Suspect]
     Indication: OSTEOPOROSIS PROPHYLAXIS
     Dosage: 60 MG DAY

REACTIONS (4)
  - ENDOMETRIAL HYPERPLASIA [None]
  - ENDOMETRIAL HYPERTROPHY [None]
  - POSTMENOPAUSAL HAEMORRHAGE [None]
  - UTERINE HAEMORRHAGE [None]
